FAERS Safety Report 6201955-5 (Version None)
Quarter: 2009Q2

REPORT INFORMATION
  Report Type: 
  Country: None (occurrence: None)
  Receive Date: 20090526
  Receipt Date: 20090515
  Transmission Date: 20091009
  Serious: Yes (Hospitalization)
  Sender: FDA-Public Use
  Company Number: A0745302A

PATIENT
  Age: 62 Year
  Sex: Male
  Weight: 99.1 kg

DRUGS (2)
  1. AVANDIA [Suspect]
     Dosage: 4MG VARIABLE DOSE
     Route: 048
     Dates: start: 20051101, end: 20070601
  2. DIABETA [Concomitant]
     Dates: start: 20051201

REACTIONS (3)
  - CARDIOVASCULAR DISORDER [None]
  - CHEST PAIN [None]
  - MUSCULOSKELETAL PAIN [None]
